FAERS Safety Report 5344529-0 (Version None)
Quarter: 2007Q2

REPORT INFORMATION
  Report Type: 
  Country: None (occurrence: None)
  Receive Date: 20070604
  Receipt Date: 20070523
  Transmission Date: 20071010
  Serious: Yes (Death)
  Sender: FDA-Public Use
  Company Number: JP-PFIZER INC-2007042498

PATIENT
  Age: 71 Year
  Sex: Female

DRUGS (7)
  1. TRIAZOLAM [Suspect]
  2. DIAZEPAM [Suspect]
  3. MORPHINE [Suspect]
  4. ACETAMINOPHEN [Suspect]
  5. EPHEDRINE [Suspect]
  6. NOREPHEDRINE HYDROCHLORIDE [Suspect]
  7. DIHYDROCODEINE BITARTRATE INJ [Suspect]

REACTIONS (1)
  - DEATH [None]
